FAERS Safety Report 19020586 (Version 2)
Quarter: 2021Q2

REPORT INFORMATION
  Report Type: Spontaneous
  Country: US (occurrence: US)
  Receive Date: 20210317
  Receipt Date: 20210430
  Transmission Date: 20210717
  Serious: Yes (Other)
  Sender: FDA-Public Use
  Company Number: US-BAYER-2021-106194

PATIENT
  Sex: Female

DRUGS (1)
  1. MIRENA [Suspect]
     Active Substance: LEVONORGESTREL
     Dosage: 20 ?G PER DAY, CONTINUOUSLY
     Route: 015
     Dates: start: 20080318, end: 201303

REACTIONS (5)
  - Embedded device [None]
  - Menstruation irregular [None]
  - Abdominal pain lower [None]
  - Amenorrhoea [None]
  - Weight increased [None]

NARRATIVE: CASE EVENT DATE: 201303
